FAERS Safety Report 14278971 (Version 12)
Quarter: 2020Q2

REPORT INFORMATION
  Report Type: Report from Study
  Country: US (occurrence: US)
  Receive Date: 20171212
  Receipt Date: 20200506
  Transmission Date: 20200713
  Serious: Yes (Death, Life-Threatening, Hospitalization, Other)
  Sender: FDA-Public Use
  Company Number: US-ACTELION-A-NJ2016-147284

PATIENT
  Age: 56 Year
  Sex: Male
  Weight: 97.51 kg

DRUGS (6)
  1. COUMADIN [Concomitant]
     Active Substance: WARFARIN SODIUM
  2. VENTAVIS [Suspect]
     Active Substance: ILOPROST
     Indication: PULMONARY ARTERIAL HYPERTENSION
     Dosage: 5.0 MCG, 6-9 X^S QD
     Route: 055
     Dates: start: 20140814
  3. AMLODIPINE [Concomitant]
     Active Substance: AMLODIPINE BESYLATE
  4. OPSUMIT [Suspect]
     Active Substance: MACITENTAN
     Indication: PULMONARY ARTERIAL HYPERTENSION
     Dosage: 10 MG, QD
     Route: 048
     Dates: start: 20160125, end: 20200328
  5. VENTAVIS [Suspect]
     Active Substance: ILOPROST
     Dosage: 5.0 MCG, 6-9 X^S QD
     Route: 055
     Dates: start: 20140814
  6. REVATIO [Concomitant]
     Active Substance: SILDENAFIL CITRATE

REACTIONS (22)
  - Pericardial effusion [Unknown]
  - Loss of consciousness [Unknown]
  - Dyspnoea exertional [Unknown]
  - Malaise [Unknown]
  - Product dose omission [Unknown]
  - Cardiac failure congestive [Unknown]
  - Cardiac disorder [Unknown]
  - Aspiration pleural cavity [Unknown]
  - Fall [Unknown]
  - Myocardial infarction [Unknown]
  - Muscle spasms [Unknown]
  - Choking [Unknown]
  - Pulmonary hypertension [Fatal]
  - Fluid retention [Unknown]
  - Nocturnal dyspnoea [Unknown]
  - Respiratory failure [Unknown]
  - Oedema [Unknown]
  - Pruritus [Unknown]
  - Sleep apnoea syndrome [Unknown]
  - Dyspnoea [Unknown]
  - Nasopharyngitis [Unknown]
  - Oedema peripheral [Unknown]

NARRATIVE: CASE EVENT DATE: 20171219
